FAERS Safety Report 8431424-3 (Version None)
Quarter: 2012Q2

REPORT INFORMATION
  Report Type: 
  Country: None (occurrence: None)
  Receive Date: 20120605
  Receipt Date: 20120523
  Transmission Date: 20120825
  Serious: Yes (Death, Other)
  Sender: FDA-Public Use
  Company Number: JP-2012-15174

PATIENT
  Age: 67 Year
  Sex: Male

DRUGS (3)
  1. PLETAL [Suspect]
     Indication: CEREBRAL INFARCTION
     Dosage: , ORAL
     Route: 048
  2. ARGATROBAN HYDRATE [Concomitant]
  3. CLOPIDOGREL BISULFATE [Concomitant]

REACTIONS (8)
  - VASCULITIS [None]
  - ARTERY DISSECTION [None]
  - TEMPORAL ARTERITIS [None]
  - ARTERIAL RESTENOSIS [None]
  - PARALYSIS [None]
  - PNEUMONIA [None]
  - MULTI-ORGAN FAILURE [None]
  - CEREBRAL INFARCTION [None]
